FAERS Safety Report 7811718-2 (Version None)
Quarter: 2011Q4

REPORT INFORMATION
  Report Type: 
  Country: None (occurrence: None)
  Receive Date: 20111013
  Receipt Date: 20111007
  Transmission Date: 20120403
  Serious: Yes (Other)
  Sender: FDA-Public Use
  Company Number: US-AMGEN-USASP2011007467

PATIENT
  Age: 43 Year
  Sex: Male
  Weight: 64.2 kg

DRUGS (5)
  1. IMMUNE GLOBULIN NOS [Concomitant]
     Indication: IDIOPATHIC THROMBOCYTOPENIC PURPURA
  2. NPLATE [Suspect]
     Indication: IDIOPATHIC THROMBOCYTOPENIC PURPURA
     Dosage: 300 MUG, QWK
     Dates: start: 20110111
  3. KEPPRA [Concomitant]
     Dosage: 1500 MG, Q12H
  4. CORTICOSTEROIDS [Concomitant]
     Indication: IDIOPATHIC THROMBOCYTOPENIC PURPURA
  5. KEPPRA [Concomitant]
     Dosage: 750 MG, Q12H

REACTIONS (7)
  - MUSCULOSKELETAL STIFFNESS [None]
  - TREMOR [None]
  - IDIOPATHIC PULMONARY FIBROSIS [None]
  - HIV INFECTION [None]
  - PARAESTHESIA [None]
  - HEADACHE [None]
  - BURNING SENSATION [None]
